FAERS Safety Report 8185558-1 (Version None)
Quarter: 2012Q1

REPORT INFORMATION
  Report Type: 
  Country: None (occurrence: None)
  Receive Date: 20120305
  Receipt Date: 20120301
  Transmission Date: 20120608
  Serious: Yes (Hospitalization)
  Sender: FDA-Public Use
  Company Number: PHEH2012US004328

PATIENT
  Sex: Female

DRUGS (3)
  1. SPIRONOLACTONE [Concomitant]
     Dosage: 100 MG, DAILY
     Route: 048
  2. GILENYA [Suspect]
     Indication: MULTIPLE SCLEROSIS
     Dosage: 0.5 MG, QD
     Route: 048
     Dates: start: 20111110, end: 20120213
  3. HYDROCHLOROTHIAZIDE [Concomitant]
     Dosage: 25 MG, DAILY
     Route: 048

REACTIONS (8)
  - NEOPLASM MALIGNANT [None]
  - ABDOMINAL MASS [None]
  - PELVIC MASS [None]
  - ABDOMINAL PAIN [None]
  - ADNEXA UTERI MASS [None]
  - SARCOMA [None]
  - ABDOMINAL PAIN LOWER [None]
  - PELVIC PAIN [None]
